FAERS Safety Report 6602859-6 (Version None)
Quarter: 2010Q1

REPORT INFORMATION
  Report Type: 
  Country: None (occurrence: None)
  Receive Date: 20100226
  Receipt Date: 20100215
  Transmission Date: 20100710
  Serious: Yes (Other)
  Sender: FDA-Public Use
  Company Number: US-RANBAXY-2010RR-31140

PATIENT
  Age: 39 Year
  Sex: Female

DRUGS (5)
  1. SERTRALINE HCL [Suspect]
     Dosage: 100 MG, UNK
  2. FENTANYL [Suspect]
     Indication: ANAESTHESIA
     Dosage: 25 UG, UNK
  3. MIDAZOLAM HCL [Concomitant]
     Indication: ANAESTHESIA
  4. VECURONIUM BROMIDE [Concomitant]
  5. ETOMIDATE [Concomitant]

REACTIONS (2)
  - DRUG INTERACTION [None]
  - SEROTONIN SYNDROME [None]
